FAERS Safety Report 11298810 (Version 1)
Quarter: 2015Q3

REPORT INFORMATION
  Report Type: Spontaneous
  Country: US (occurrence: US)
  Receive Date: 20150722
  Receipt Date: 20150722
  Transmission Date: 20151125
  Serious: No
  Sender: FDA-Public Use
  Company Number: US-ELI_LILLY_AND_COMPANY-US201201003166

PATIENT
  Sex: Female
  Weight: 121.54 kg

DRUGS (2)
  1. HUMATROPE [Suspect]
     Active Substance: SOMATROPIN
     Dosage: 0.2 MG, QD
     Route: 058
  2. HUMATROPE [Suspect]
     Active Substance: SOMATROPIN
     Indication: GROWTH HORMONE DEFICIENCY
     Dosage: 0.2 MG, QD
     Route: 058

REACTIONS (6)
  - Malaise [Unknown]
  - Injection site bruising [Unknown]
  - Mental disorder [Unknown]
  - Amnesia [Unknown]
  - Insulin-like growth factor decreased [Unknown]
  - Incorrect dose administered by device [Unknown]
